FAERS Safety Report 5760858-0 (Version None)
Quarter: 2008Q2

REPORT INFORMATION
  Report Type: 
  Country: None (occurrence: None)
  Receive Date: 20080606
  Receipt Date: 20080606
  Transmission Date: 20081010
  Serious: Yes (Death)
  Sender: FDA-Public Use
  Company Number: None

PATIENT
  Age: 68 Year
  Sex: Male
  Weight: 74.3899 kg

DRUGS (2)
  1. HEPARIN [Suspect]
  2. HEPARIN [Suspect]

REACTIONS (2)
  - PROCEDURAL COMPLICATION [None]
  - SWELLING [None]
